FAERS Safety Report 6122076-6 (Version None)
Quarter: 2009Q1

REPORT INFORMATION
  Report Type: 
  Country: None (occurrence: None)
  Receive Date: 20090316
  Receipt Date: 20090316
  Transmission Date: 20090719
  Serious: Yes (Other)
  Sender: FDA-Public Use
  Company Number: None

PATIENT
  Age: 22 Year
  Sex: Female
  Weight: 55.3388 kg

DRUGS (1)
  1. MIRENA [Suspect]
     Indication: CONTRACEPTION
     Dosage: 20 MCG LNG DAILY INTRA-UTERINE
     Route: 015
     Dates: start: 20090108, end: 20090130

REACTIONS (2)
  - MALAISE [None]
  - PREGNANCY WITH CONTRACEPTIVE DEVICE [None]
